FAERS Safety Report 16342321 (Version 1)
Quarter: 2019Q2

REPORT INFORMATION
  Report Type: Spontaneous
  Country: US (occurrence: US)
  Receive Date: 20190416
  Receipt Date: 20190416
  Transmission Date: 20190711
  Serious: Yes (Other)
  Sender: FDA-Public Use
  Company Number: None

PATIENT
  Age: 29 Year
  Sex: Male

DRUGS (1)
  1. OLD SPICE CLASSIC ORIGINAL SCENT [Suspect]
     Active Substance: ALUMINUM ZIRCONIUM TRICHLOROHYDREX GLY
     Dosage: 2 SWIPES EACH ARM 1X/DAY IN MORNING TOPICAL
     Route: 061
     Dates: end: 20181017

REACTIONS (4)
  - Product residue present [None]
  - Anhidrosis [None]
  - Axillary mass [None]
  - Purulent discharge [None]

NARRATIVE: CASE EVENT DATE: 201807
